FAERS Safety Report 4618411-8 (Version None)
Quarter: 2005Q1

REPORT INFORMATION
  Report Type: 
  Country: None (occurrence: None)
  Receive Date: 20050323
  Receipt Date: 20050310
  Transmission Date: 20050727
  Serious: Yes (Death)
  Sender: FDA-Public Use
  Company Number: 2005042624

PATIENT
  Age: 70 Year
  Sex: Male

DRUGS (2)
  1. IRINOTECAN HCL [Suspect]
     Indication: COLORECTAL CANCER
     Dosage: INTRAVENOUS
     Route: 042
  2. DOXIFLURIDINE (DOXIFLURIDINE) [Concomitant]

REACTIONS (1)
  - INTERSTITIAL LUNG DISEASE [None]
